FAERS Safety Report 8517168-8 (Version None)
Quarter: 2012Q3

REPORT INFORMATION
  Report Type: 
  Country: None (occurrence: None)
  Receive Date: 20120718
  Receipt Date: 20120710
  Transmission Date: 20120928
  Serious: Yes (Other)
  Sender: FDA-Public Use
  Company Number: SG-COVIDIEN/TYCO HEALTHCARE/MALLINCKRODT-T201202765

PATIENT
  Age: 55 Year
  Sex: Female

DRUGS (1)
  1. OPTIRAY 160 [Suspect]
     Dosage: 50 ML, SINGLE
     Route: 042
     Dates: start: 20120410, end: 20120410

REACTIONS (1)
  - RASH ERYTHEMATOUS [None]
